FAERS Safety Report 19538496 (Version 1)
Quarter: 2021Q3

REPORT INFORMATION
  Report Type: Spontaneous
  Country: US (occurrence: US)
  Receive Date: 20210713
  Receipt Date: 20210713
  Transmission Date: 20211014
  Serious: Yes (Other)
  Sender: FDA-Public Use
  Company Number: US-SA-2021SA223194

PATIENT
  Age: 60 Year
  Sex: Male
  Weight: 77.1 kg

DRUGS (2)
  1. RANITIDINE. [Suspect]
     Active Substance: RANITIDINE
     Indication: ABDOMINAL DISCOMFORT
     Dosage: UNKNOWN
  2. ZANTAC [Suspect]
     Active Substance: RANITIDINE HYDROCHLORIDE
     Indication: GASTROINTESTINAL DISORDER
     Dosage: 75 MG
     Route: 065
     Dates: start: 199709, end: 201911

REACTIONS (5)
  - Gastric cancer [Unknown]
  - Colorectal cancer [Unknown]
  - Gastrointestinal carcinoma [Unknown]
  - Hepatic cancer [Unknown]
  - Pancreatic carcinoma [Unknown]

NARRATIVE: CASE EVENT DATE: 20191010
